FAERS Safety Report 7881477 (Version 2)
Quarter: 2024Q1

REPORT INFORMATION
  Report Type: Spontaneous
  Country: FR (occurrence: FR)
  Receive Date: 20110401
  Receipt Date: 20240319
  Transmission Date: 20240410
  Serious: Yes (Life-Threatening)
  Sender: FDA-Public Use
  Company Number: FR-NOVOPROD-325581

PATIENT
  Age: 67 Year
  Sex: Male
  Weight: 109 kg

DRUGS (5)
  1. NOVORAPID [Suspect]
     Active Substance: INSULIN ASPART
     Indication: Product used for unknown indication
     Dosage: UNK
     Route: 058
     Dates: start: 2008
  2. CELIPROLOL [Concomitant]
     Active Substance: CELIPROLOL
     Dosage: UNK
  3. LOSARTAN [Concomitant]
     Active Substance: LOSARTAN
     Dosage: UNK
  4. SIMVASTATIN [Concomitant]
     Active Substance: SIMVASTATIN
  5. LANTUS [Suspect]
     Active Substance: INSULIN GLARGINE
     Indication: Product used for unknown indication
     Dosage: UNK

REACTIONS (1)
  - Pancreatic carcinoma [Recovered/Resolved with Sequelae]

NARRATIVE: CASE EVENT DATE: 20101001
